FAERS Safety Report 12284443 (Version 1)
Quarter: 2016Q2

REPORT INFORMATION
  Report Type: Spontaneous
  Country: CA (occurrence: CA)
  Receive Date: 20160420
  Receipt Date: 20160420
  Transmission Date: 20160815
  Serious: Yes (Other)
  Sender: FDA-Public Use
  Company Number: CA-ASTRAZENECA-2016SE40009

PATIENT
  Sex: Female
  Weight: 54.4 kg

DRUGS (9)
  1. SYSTANE LUBRICANT EYE DROPS [Concomitant]
  2. TUDORZA GENUAIR [Suspect]
     Active Substance: ACLIDINIUM BROMIDE
     Indication: CHRONIC OBSTRUCTIVE PULMONARY DISEASE
     Route: 055
  3. ASACOL [Concomitant]
     Active Substance: MESALAMINE
  4. SEREVENT DISKUS [Concomitant]
     Active Substance: SALMETEROL XINAFOATE
  5. TUDORZA GENUAIR [Suspect]
     Active Substance: ACLIDINIUM BROMIDE
     Indication: EMPHYSEMA
     Route: 055
  6. BIOCAL-D FORTE [Concomitant]
  7. ALVESCO [Concomitant]
     Active Substance: CICLESONIDE
  8. LAMIVUDINE. [Concomitant]
     Active Substance: LAMIVUDINE
  9. MERCAPTOPURINE. [Concomitant]
     Active Substance: MERCAPTOPURINE

REACTIONS (1)
  - Throat irritation [Recovered/Resolved]
